FAERS Safety Report 16240574 (Version 1)
Quarter: 2019Q2

REPORT INFORMATION
  Report Type: Spontaneous
  Country: SE (occurrence: SE)
  Receive Date: 20190425
  Receipt Date: 20190425
  Transmission Date: 20190711
  Serious: Yes (Other)
  Sender: FDA-Public Use
  Company Number: SE-MYLANLABS-2019M1038410

PATIENT
  Sex: Male

DRUGS (24)
  1. RESONIUM [Concomitant]
     Active Substance: SODIUM POLYSTYRENE SULFONATE
     Dosage: UNK
  2. ENALAPRIL [Concomitant]
     Active Substance: ENALAPRIL
     Dosage: UNK
  3. ATARAX [Concomitant]
     Active Substance: HYDROXYZINE HYDROCHLORIDE
     Dosage: AS NECESSARY
  4. FURIX (FUROSEMIDE) [Concomitant]
     Active Substance: FUROSEMIDE
     Dosage: UNK
  5. DENTAN MINT [Concomitant]
  6. BRICANYL [Concomitant]
     Active Substance: TERBUTALINE SULFATE
     Dosage: AS NECESSARY
  7. FOLACIN                            /00024201/ [Concomitant]
     Active Substance: FOLIC ACID
     Dosage: UNK
  8. ESOMEPRAZOLE. [Concomitant]
     Active Substance: ESOMEPRAZOLE MAGNESIUM
     Dosage: UNK
  9. ACETYLCYSTEINE. [Concomitant]
     Active Substance: ACETYLCYSTEINE
     Dosage: UNK
  10. SEVELAMER [Concomitant]
     Active Substance: SEVELAMER
     Dosage: UNK
  11. MOXALOLE [Concomitant]
     Dosage: UNK
  12. OXYNORM [Concomitant]
     Active Substance: OXYCODONE HYDROCHLORIDE
     Dosage: AS NECESSARY
  13. CALCITUGG [Concomitant]
     Dosage: UNK
  14. INSULATARD                         /00646002/ [Concomitant]
     Active Substance: INSULIN HUMAN
     Dosage: UNK
  15. NOVORAPID [Concomitant]
     Active Substance: INSULIN ASPART
     Dosage: UNK
  16. PREDNISOLONE. [Concomitant]
     Active Substance: PREDNISOLONE
     Dosage: UNK
  17. VELPHORO [Concomitant]
     Active Substance: FERRIC OXYHYDROXIDE
     Dosage: UNK
  18. CANODERM [Concomitant]
     Active Substance: UREA
     Dosage: AS NECESSARY
  19. ETALPHA [Concomitant]
     Active Substance: ALFACALCIDOL
     Dosage: UNK
  20. ALIMEMAZINE [Concomitant]
     Active Substance: TRIMEPRAZINE
     Dosage: UNK
  21. DELTISON [Suspect]
     Active Substance: PREDNISONE
     Indication: HYPERSENSITIVITY PNEUMONITIS
     Dosage: UNK
  22. LAKTULOS [Concomitant]
     Dosage: AS NECESSARY
  23. ALVEDON [Concomitant]
     Active Substance: ACETAMINOPHEN
     Dosage: AS NECESSARY
  24. INOLAXOL                           /00561902/ [Concomitant]
     Dosage: AS NECESSARY

REACTIONS (1)
  - Steroid diabetes [Unknown]
